FAERS Safety Report 9944951 (Version 1)
Quarter: 2014Q1

REPORT INFORMATION
  Report Type: Report from Study
  Country: US (occurrence: US)
  Receive Date: 20140303
  Receipt Date: 20140303
  Transmission Date: 20141002
  Serious: No
  Sender: FDA-Public Use
  Company Number: US-ABBVIE-13P-163-1050423-00

PATIENT
  Age: 52 Year
  Sex: Female

DRUGS (3)
  1. HUMIRA [Suspect]
     Indication: PSORIATIC ARTHROPATHY
     Route: 058
     Dates: start: 201210
  2. HUMIRA [Suspect]
     Indication: PSORIASIS
  3. NORCO [Concomitant]
     Indication: PRODUCT USED FOR UNKNOWN INDICATION
     Dosage: SIX TO EIGHT TIMES PER DAY
     Route: 048

REACTIONS (5)
  - Wrong technique in drug usage process [Recovered/Resolved]
  - Device malfunction [Recovered/Resolved]
  - Wrong technique in drug usage process [Recovered/Resolved]
  - Incorrect dose administered [Recovered/Resolved]
  - Injection site erythema [Recovered/Resolved]
